FAERS Safety Report 6628286-3 (Version None)
Quarter: 2010Q1

REPORT INFORMATION
  Report Type: 
  Country: None (occurrence: None)
  Receive Date: 20100311
  Receipt Date: 20100308
  Transmission Date: 20100710
  Serious: Yes (Hospitalization)
  Sender: FDA-Public Use
  Company Number: FR-SANOFI-AVENTIS-2010SA012850

PATIENT
  Age: 60 Year
  Sex: Female

DRUGS (3)
  1. FLUOROURACILE WINTHROP [Suspect]
     Indication: OVARIAN CANCER
     Route: 041
     Dates: start: 20100112, end: 20100113
  2. ELOXATIN [Suspect]
     Indication: OVARIAN CANCER
     Route: 041
     Dates: start: 20100112, end: 20100112
  3. FOLINIC ACID [Concomitant]
     Indication: OVARIAN CANCER
     Route: 041
     Dates: start: 20100112, end: 20100113

REACTIONS (6)
  - CEREBELLAR ATAXIA [None]
  - CONFUSIONAL STATE [None]
  - DYSARTHRIA [None]
  - ENCEPHALOPATHY [None]
  - HEMIPARESIS [None]
  - LEUKOENCEPHALOPATHY [None]
